FAERS Safety Report 4808899-1 (Version None)
Quarter: 2005Q4

REPORT INFORMATION
  Report Type: 
  Country: None (occurrence: None)
  Receive Date: 20051020
  Receipt Date: 20051020
  Transmission Date: 20060501
  Serious: Yes (Other)
  Sender: FDA-Public Use
  Company Number: None

PATIENT
  Sex: Female
  Weight: 46 kg

DRUGS (16)
  1. CYCLOPHOSPHAMIDE [Suspect]
     Indication: ACUTE LYMPHOCYTIC LEUKAEMIA
     Dosage: 1200 MG/M2 IV OVER 15-30 MIN ON DAY 1
     Route: 042
     Dates: start: 20050923
  2. CYCLOPHOSPHAMIDE [Suspect]
     Indication: BONE MARROW DISORDER
     Dosage: 1200 MG/M2 IV OVER 15-30 MIN ON DAY 1
     Route: 042
     Dates: start: 20050923
  3. ALLOPURINOL [Suspect]
     Dosage: 300 MG PO QD ON DAYS 1-14 (COURSE 1 ONLY)
     Route: 048
  4. DAUNORUBICIN [Suspect]
     Dosage: 80 MG/M2/DAY X 3 DAYS IV ON DAYS 1,2,3. 255.6 MG
     Route: 042
     Dates: start: 20050925
  5. VINCRISTINE [Suspect]
     Dosage: 2 MG IVP ON DAYS 1,8,15,22 TOTAL COURSE 7MG
     Route: 042
     Dates: start: 20051014
  6. DEXAMETHASONE [Suspect]
     Dosage: 5MG/M2 PO BID ON DAYS 1-7(AND 15-21 COURSE 1 ONLY)
  7. L-ASPARAGINASE [Suspect]
     Dosage: 6000 U/M2 SC/IM ON DAYS 5,8,11,15,18,22 TOTAL DOSE 42600 MG
     Route: 058
     Dates: start: 20051010
  8. G-CSF [Suspect]
     Dosage: 5 MCG/KG/DAY SC STARTING DAY 4 X 7 DAYS AND CONTINUING UNTIL ANC IS }5000 MCL PRN
     Route: 058
  9. METHOTREXATE [Suspect]
     Dosage: 15 MG AND 50 MG IT ON DAY 1
     Route: 037
  10. CYCLOPHOSPHAMIDE [Suspect]
     Dosage: 1000 MG/M2 IV OVER 15-30 MIN ON DAY 1
     Route: 042
  11. CYTARABINE [Suspect]
     Dosage: 2000 MG/M2 IV OVER 3 HR ON DAYS 1,2,AND 3
  12. L-ASPARAGINASE [Suspect]
     Dosage: 6000 U/M2 SC/IM ON DAYS 15,18, AND 22
     Route: 058
  13. DEXAMETHASONE (0.1%) [Suspect]
     Dosage: 2 DROPS EACH EYE QID AND PRN ON DAYS 1,2,3, AND 4
     Route: 047
  14. G-CSF [Suspect]
     Dosage: 5MCG/KG/DAY SC BEGINNING ON DAY 4 AND CONTINUING UNTIL ANC}5000 MCL.
     Route: 058
  15. COTRIMOXAZOLE DS [Suspect]
     Dosage: ONE TABLET PO BID 3 DAYS/WEEK UNTIL THE COMPLETION OF ALL CHEMOTHERAPY
     Route: 048
  16. HYDROCORTISONE [Suspect]
     Dosage: IT
     Route: 037

REACTIONS (4)
  - BLOOD ALKALINE PHOSPHATASE INCREASED [None]
  - BLOOD BILIRUBIN INCREASED [None]
  - HYPOALBUMINAEMIA [None]
  - HYPOCALCAEMIA [None]
